FAERS Safety Report 9034642 (Version 2)
Quarter: 2013Q1

REPORT INFORMATION
  Report Type: Spontaneous
  Country: US (occurrence: US)
  Receive Date: 20130128
  Receipt Date: 20130325
  Transmission Date: 20140127
  Serious: Yes (Disabling, Other)
  Sender: FDA-Public Use
  Company Number: US-GLAXOSMITHKLINE-A1009169A

PATIENT
  Age: 8 Year
  Sex: Female

DRUGS (8)
  1. ADVAIR [Suspect]
     Indication: ASTHMA
     Dosage: 2PUFF TWICE PER DAY
     Route: 055
     Dates: start: 2011
  2. PULMICORT [Concomitant]
  3. XOPENEX [Concomitant]
  4. METOCLOPRAMIDE [Concomitant]
  5. ZYRTEC [Concomitant]
  6. NASONEX [Concomitant]
  7. SALINE NASAL WASHES [Concomitant]
  8. XOPENEX [Concomitant]

REACTIONS (6)
  - Nasopharyngitis [Not Recovered/Not Resolved]
  - Cough [Not Recovered/Not Resolved]
  - Wheezing [Not Recovered/Not Resolved]
  - Rhinorrhoea [Not Recovered/Not Resolved]
  - Product quality issue [Unknown]
  - Asthma [Not Recovered/Not Resolved]
